FAERS Safety Report 13230998 (Version 1)
Quarter: 2017Q1

REPORT INFORMATION
  Report Type: Report from Study
  Country: US (occurrence: US)
  Receive Date: 20170214
  Receipt Date: 20170214
  Transmission Date: 20170428
  Serious: Yes (Other)
  Sender: FDA-Public Use
  Company Number: US-AMGEN-USASL2017021026

PATIENT
  Sex: Male

DRUGS (1)
  1. REPATHA [Suspect]
     Active Substance: EVOLOCUMAB
     Indication: HYPERCHOLESTEROLAEMIA
     Dosage: 140 MG, Q2WK
     Route: 065
     Dates: start: 20161215

REACTIONS (9)
  - Hypoaesthesia [Unknown]
  - Back pain [Unknown]
  - Cardiac disorder [Unknown]
  - Erythema [Unknown]
  - Skin discolouration [Unknown]
  - Cyanosis [Unknown]
  - Diverticulitis [Unknown]
  - Muscle tightness [Unknown]
  - Contusion [Recovered/Resolved]
